FAERS Safety Report 20158774 (Version 8)
Quarter: 2022Q1

REPORT INFORMATION
  Report Type: Report from Study
  Country: ES (occurrence: ES)
  Receive Date: 20211208
  Receipt Date: 20220204
  Transmission Date: 20220424
  Serious: Yes (Hospitalization)
  Sender: FDA-Public Use
  Company Number: ES-ABBVIE-21K-144-4181059-00

PATIENT
  Sex: Male

DRUGS (2)
  1. CARBIDOPA\LEVODOPA [Suspect]
     Active Substance: CARBIDOPA\LEVODOPA
     Indication: Parkinson^s disease
     Route: 050
     Dates: start: 20201120, end: 20211114
  2. CARBIDOPA\LEVODOPA [Suspect]
     Active Substance: CARBIDOPA\LEVODOPA
     Dosage: CHANGED THE CONTINUOUS DOSE
     Route: 050
     Dates: start: 20211114

REACTIONS (7)
  - Orchitis [Recovered/Resolved]
  - SARS-CoV-2 test positive [Recovered/Resolved]
  - Lung infiltration [Unknown]
  - General symptom [Recovering/Resolving]
  - Head injury [Recovering/Resolving]
  - Fall [Recovered/Resolved]
  - Freezing phenomenon [Unknown]

NARRATIVE: CASE EVENT DATE: 20210101
